FAERS Safety Report 21800895 (Version 1)
Quarter: 2022Q4

REPORT INFORMATION
  Report Type: Spontaneous
  Country: JP (occurrence: JP)
  Receive Date: 20221230
  Receipt Date: 20221230
  Transmission Date: 20230113
  Serious: Yes (Other)
  Sender: FDA-Public Use
  Company Number: JP-SA-SAC20221229000952

PATIENT
  Age: 49 Year
  Sex: Female

DRUGS (1)
  1. IRBESARTAN [Suspect]
     Active Substance: IRBESARTAN
     Dosage: UNK UNK, QD
     Route: 048

REACTIONS (2)
  - Neuropathy peripheral [Unknown]
  - Platelet count decreased [Unknown]
